FAERS Safety Report 5925446-1 (Version None)
Quarter: 2008Q3

REPORT INFORMATION
  Report Type: 
  Country: None (occurrence: None)
  Receive Date: 20080909
  Receipt Date: 20080402
  Transmission Date: 20090109
  Serious: Yes (Other)
  Sender: FDA-Public Use
  Company Number: 163-20785-08030245

PATIENT
  Age: 73 Year
  Sex: Male
  Weight: 70.3 kg

DRUGS (7)
  1. THALOMID [Suspect]
     Indication: MULTIPLE MYELOMA
     Dosage: 200 MG, 4 IN 1 D, ORAL
     Route: 048
     Dates: start: 20050419, end: 20060301
  2. DEXAMETHASONE [Suspect]
     Indication: DRUG USE FOR UNKNOWN INDICATION
     Dosage: 2.8571 MG, 5 IN 1 WK, ORAL
     Route: 048
     Dates: start: 20070801, end: 20071101
  3. COMBIVENT (COMBIVENT) (AEROSOL FOR INHALATION) [Concomitant]
  4. COUMADIN [Concomitant]
  5. FUROSEMIDE [Concomitant]
  6. FLOVENT (FLUTICASONE PROPIONATE) (AEROSOL FOR INHALATION) [Concomitant]
  7. ZANTAC (RANITIDINE HYDROCHLORIDE) (TABLETS) [Concomitant]

REACTIONS (2)
  - DEEP VEIN THROMBOSIS [None]
  - RASH [None]
